FAERS Safety Report 5754417-3 (Version None)
Quarter: 2008Q2

REPORT INFORMATION
  Report Type: 
  Country: None (occurrence: None)
  Receive Date: 20080530
  Receipt Date: 20080522
  Transmission Date: 20081010
  Serious: Yes (Other)
  Sender: FDA-Public Use
  Company Number: ES-BOEHRINGER INGELHEIM GMBH, GERMANY-2008-ES-00573ES

PATIENT
  Age: 78 Year
  Sex: Male

DRUGS (1)
  1. MIRAPEXIN [Suspect]
     Indication: RESTLESS LEGS SYNDROME
     Route: 048
     Dates: start: 20071121, end: 20080225

REACTIONS (3)
  - CONFUSIONAL STATE [None]
  - DYSARTHRIA [None]
  - HEMIPARESIS [None]
